FAERS Safety Report 18514553 (Version 2)
Quarter: 2020Q4

REPORT INFORMATION
  Report Type: Spontaneous
  Country: NZ (occurrence: NZ)
  Receive Date: 20201117
  Receipt Date: 20201123
  Transmission Date: 20210114
  Serious: Yes (Life-Threatening, Hospitalization, Other)
  Sender: FDA-Public Use
  Company Number: NZ-BAXTER-2020BAX022915

PATIENT
  Age: 74 Year
  Sex: Female

DRUGS (6)
  1. OMEPRAZOLE. [Concomitant]
     Active Substance: OMEPRAZOLE
     Indication: PRODUCT USED FOR UNKNOWN INDICATION
     Route: 065
  2. CARVEDILOL. [Concomitant]
     Active Substance: CARVEDILOL
     Indication: LEFT VENTRICULAR FAILURE
     Dosage: DRUG ADMIN DURATION (1 MONTH + ONE DAY)
     Route: 065
  3. CILAZAPRIL [Concomitant]
     Active Substance: CILAZAPRIL ANHYDROUS
     Indication: LEFT VENTRICULAR FAILURE
     Dosage: DRUG ADMIN DURATION (STOPPED TWO DAYS PRIOR TO ONE MONTH)
     Route: 065
  4. COLECALCIFEROL [Concomitant]
     Active Substance: CHOLECALCIFEROL
     Indication: PRODUCT USED FOR UNKNOWN INDICATION
     Route: 065
  5. FRUSEMIDE-CLARIS [Suspect]
     Active Substance: FUROSEMIDE
     Indication: LEFT VENTRICULAR FAILURE
     Dosage: FUROSEMIDE TITRATION
     Route: 065
  6. ATORVASTATIN [Concomitant]
     Active Substance: ATORVASTATIN
     Indication: LEFT VENTRICULAR FAILURE
     Route: 065

REACTIONS (3)
  - Dehydration [Unknown]
  - Acute kidney injury [Recovering/Resolving]
  - Weight decreased [Unknown]
